FAERS Safety Report 14785048 (Version 1)
Quarter: 2018Q2

REPORT INFORMATION
  Report Type: Spontaneous
  Country: JP (occurrence: JP)
  Receive Date: 20180420
  Receipt Date: 20180420
  Transmission Date: 20180711
  Serious: Yes (Other)
  Sender: FDA-Public Use
  Company Number: JP-ROCHE-2103585

PATIENT
  Age: 5 Year
  Sex: Female
  Weight: 18 kg

DRUGS (4)
  1. MEDICON (DEXTROMETHORPHAN HYDROBROMIDE/POTASSIUM CRESOLSULFONATE) [Concomitant]
     Route: 048
     Dates: start: 20180312, end: 20180317
  2. TAMIFLU [Suspect]
     Active Substance: OSELTAMIVIR PHOSPHATE
     Indication: INFLUENZA
     Route: 048
     Dates: start: 20180312, end: 20180314
  3. SENEGA [Concomitant]
     Route: 048
     Dates: start: 20180312, end: 20180317
  4. SALIPARA [Concomitant]
     Route: 048
     Dates: start: 20180312, end: 20180317

REACTIONS (2)
  - Crying [Unknown]
  - Agitation [Unknown]

NARRATIVE: CASE EVENT DATE: 20180313
